FAERS Safety Report 11212749 (Version 17)
Quarter: 2023Q4

REPORT INFORMATION
  Report Type: Report from Study
  Country: CA (occurrence: CA)
  Receive Date: 20150623
  Receipt Date: 20231129
  Transmission Date: 20240110
  Serious: Yes (Hospitalization, Other)
  Sender: FDA-Public Use
  Company Number: CA-AEGERION PHARMACEUTICALS-AEGR001107

PATIENT
  Age: 55 Year
  Sex: Male
  Weight: 63.492 kg

DRUGS (23)
  1. JUXTAPID [Suspect]
     Active Substance: LOMITAPIDE MESYLATE
     Indication: Type IIa hyperlipidaemia
     Dosage: 5 MG, QD
     Route: 048
     Dates: start: 20140920, end: 20141110
  2. JUXTAPID [Suspect]
     Active Substance: LOMITAPIDE MESYLATE
     Dosage: 10 MG, QD
     Route: 048
     Dates: start: 20141111, end: 20150520
  3. JUXTAPID [Suspect]
     Active Substance: LOMITAPIDE MESYLATE
     Dosage: 20 MG, QD
     Route: 048
     Dates: start: 20150525, end: 20150611
  4. JUXTAPID [Suspect]
     Active Substance: LOMITAPIDE MESYLATE
     Dosage: 10 MG, QD
     Route: 048
     Dates: start: 20150623, end: 20150731
  5. JUXTAPID [Suspect]
     Active Substance: LOMITAPIDE MESYLATE
     Dosage: 10 MG, QD
     Route: 048
     Dates: start: 20151019, end: 20151023
  6. JUXTAPID [Suspect]
     Active Substance: LOMITAPIDE MESYLATE
     Dosage: 5 MG, QD
     Route: 048
     Dates: start: 20160411
  7. JUXTAPID [Suspect]
     Active Substance: LOMITAPIDE MESYLATE
     Dosage: UNK
  8. ASPIRIN [Concomitant]
     Active Substance: ASPIRIN
     Indication: Platelet aggregation inhibition
     Dosage: 80 MG, QD
     Dates: start: 19960705
  9. CLOPIDOGREL [Concomitant]
     Active Substance: CLOPIDOGREL BISULFATE
     Indication: Thrombosis prophylaxis
     Dosage: 75 MG, QD
     Dates: start: 20131118
  10. DEXLANSOPRAZOLE [Concomitant]
     Active Substance: DEXLANSOPRAZOLE
     Indication: Gastrooesophageal reflux prophylaxis
     Dosage: 60 MG, QD
     Dates: start: 20141111
  11. EZETIMIBE [Concomitant]
     Active Substance: EZETIMIBE
     Indication: Hypercholesterolaemia
     Dosage: 10 MG, QD
     Dates: start: 20140703
  12. EZETIMIBE [Concomitant]
     Active Substance: EZETIMIBE
     Indication: Dyslipidaemia
  13. METOPROLOL [Concomitant]
     Active Substance: METOPROLOL
     Indication: Cardiovascular event prophylaxis
     Dosage: 25 MG, BID
     Dates: start: 20141011
  14. METOPROLOL [Concomitant]
     Active Substance: METOPROLOL
     Indication: Angina pectoris
  15. ROSUVASTATIN [Concomitant]
     Active Substance: ROSUVASTATIN
     Indication: Hypercholesterolaemia
     Dosage: 40 MG, QD
     Dates: start: 20121223
  16. ROSUVASTATIN [Concomitant]
     Active Substance: ROSUVASTATIN
     Indication: Dyslipidaemia
  17. ATROVENT [Concomitant]
     Active Substance: IPRATROPIUM BROMIDE
     Indication: Lung disorder
     Dosage: 20 MCG, 2 PUFFS, EVERY 6 HRS
  18. ATROVENT [Concomitant]
     Active Substance: IPRATROPIUM BROMIDE
     Indication: Wheezing
     Dosage: 17, 2 PUFFS Q6 HRS, PRN
  19. ATROVENT [Concomitant]
     Active Substance: IPRATROPIUM BROMIDE
     Dosage: 17 UG, PRN
     Dates: start: 20140208
  20. NITROGLYCERIN [Concomitant]
     Active Substance: NITROGLYCERIN
     Indication: Chest pain
     Dosage: 0.4 MG, PRN
  21. ZOPICLONE [Concomitant]
     Active Substance: ZOPICLONE
     Indication: Insomnia
     Dosage: 7.5 MG, PRN
  22. VITAMIN E [Concomitant]
     Active Substance: .ALPHA.-TOCOPHEROL
     Indication: Antioxidant therapy
     Dosage: 400 IU, QD
  23. ALBUTEROL SULFATE [Concomitant]
     Active Substance: ALBUTEROL SULFATE
     Indication: Wheezing
     Dosage: 2 MG, PRN
     Dates: start: 20140208

REACTIONS (23)
  - Acute coronary syndrome [Unknown]
  - Angina pectoris [Recovered/Resolved]
  - Carotid artery stenosis [Unknown]
  - Carotid artery occlusion [Unknown]
  - Dyspnoea [Recovered/Resolved]
  - Carotid bruit [Unknown]
  - Blood iron decreased [Recovered/Resolved]
  - Hunger [Recovered/Resolved]
  - Middle insomnia [Recovered/Resolved]
  - Toothache [Recovered/Resolved]
  - Anaemia [Unknown]
  - Asthenia [Unknown]
  - Palpitations [Recovered/Resolved]
  - Abdominal distension [Recovered/Resolved]
  - Nausea [Unknown]
  - Flatulence [Recovered/Resolved]
  - Diarrhoea [Not Recovered/Not Resolved]
  - Abdominal pain upper [Not Recovered/Not Resolved]
  - Fatigue [Recovering/Resolving]
  - Alanine aminotransferase increased [Unknown]
  - Aspartate aminotransferase increased [Unknown]
  - Constipation [Recovered/Resolved]
  - Product use issue [Unknown]

NARRATIVE: CASE EVENT DATE: 20150605
